FAERS Safety Report 20532738 (Version 1)
Quarter: 2022Q1

REPORT INFORMATION
  Report Type: Spontaneous
  Country: US (occurrence: None)
  Receive Date: 20220228
  Receipt Date: 20220228
  Transmission Date: 20220423
  Serious: Yes (Disabling)
  Sender: FDA-Public Use
  Company Number: None

PATIENT
  Age: 74 Year
  Sex: Female
  Weight: 63.96 kg

DRUGS (4)
  1. EVUSHELD [Suspect]
     Active Substance: CILGAVIMAB\TIXAGEVIMAB
     Indication: Immunosuppression
     Dates: start: 20220202, end: 20220202
  2. EVUSHELD [Suspect]
     Active Substance: CILGAVIMAB\TIXAGEVIMAB
     Indication: COVID-19 prophylaxis
  3. TIXAGEVIMAB [Concomitant]
     Active Substance: TIXAGEVIMAB
     Dates: start: 20220202, end: 20220202
  4. CILGAVIMAB [Concomitant]
     Active Substance: CILGAVIMAB
     Dates: start: 20220202, end: 20220202

REACTIONS (3)
  - Headache [None]
  - Eye pain [None]
  - Visual impairment [None]

NARRATIVE: CASE EVENT DATE: 20220202
